FAERS Safety Report 10266197 (Version 1)
Quarter: 2014Q2

REPORT INFORMATION
  Report Type: Spontaneous
  Country: US (occurrence: US)
  Receive Date: 20140627
  Receipt Date: 20140627
  Transmission Date: 20141212
  Serious: Yes (Hospitalization)
  Sender: FDA-Public Use
  Company Number: US-ABBVIE-14P-163-1250349-00

PATIENT
  Age: 44 Year
  Sex: Female
  Weight: 88.98 kg

DRUGS (5)
  1. HUMIRA [Suspect]
     Indication: COLITIS ULCERATIVE
     Dates: start: 20140508, end: 20140508
  2. HUMIRA [Suspect]
     Dates: start: 20140522, end: 20140522
  3. HUMIRA [Suspect]
     Dates: start: 20140605
  4. PREDNISONE [Concomitant]
     Indication: COLITIS ULCERATIVE
  5. IRON [Concomitant]
     Indication: ANAEMIA

REACTIONS (9)
  - Asthenia [Recovered/Resolved]
  - Colitis ulcerative [Recovered/Resolved]
  - Aspartate aminotransferase increased [Recovered/Resolved]
  - Alanine aminotransferase increased [Recovered/Resolved]
  - Abdominal pain [Recovered/Resolved]
  - Diarrhoea [Recovered/Resolved]
  - Nausea [Not Recovered/Not Resolved]
  - Vomiting [Recovered/Resolved]
  - Haematochezia [Recovered/Resolved]
